FAERS Safety Report 7010997-1 (Version None)
Quarter: 2010Q3

REPORT INFORMATION
  Report Type: 
  Country: None (occurrence: None)
  Receive Date: 20100923
  Receipt Date: 20081125
  Transmission Date: 20110219
  Serious: No
  Sender: FDA-Public Use
  Company Number: US-WYE-H06539208

PATIENT
  Sex: Male
  Weight: 79 kg

DRUGS (3)
  1. EFFEXOR XR [Suspect]
     Route: 048
     Dates: start: 20080729, end: 20081106
  2. EFFEXOR XR [Suspect]
     Dosage: UNKNOWN
     Route: 048
  3. WELLBUTRIN SR [Concomitant]

REACTIONS (2)
  - NONSPECIFIC REACTION [None]
  - WEIGHT INCREASED [None]
